FAERS Safety Report 17005905 (Version 1)
Quarter: 2019Q4

REPORT INFORMATION
  Report Type: Spontaneous
  Country: US (occurrence: US)
  Receive Date: 20191106
  Receipt Date: 20191106
  Transmission Date: 20200122
  Serious: Yes (Other)
  Sender: FDA-Public Use
  Company Number: None

PATIENT
  Age: 35 Year
  Sex: Female
  Weight: 96.75 kg

DRUGS (1)
  1. FLUCONAZOLE TABLET [Suspect]
     Active Substance: FLUCONAZOLE
     Indication: FUNGAL INFECTION
     Dosage: ?          QUANTITY:1 CAPSULE(S);OTHER FREQUENCY:1 CAPSULE, 1 DAY;?
     Route: 048
     Dates: start: 20191030, end: 20191031

REACTIONS (3)
  - Drug interaction [None]
  - Diplopia [None]
  - Drug monitoring procedure not performed [None]

NARRATIVE: CASE EVENT DATE: 20191030
